FAERS Safety Report 20684409 (Version 1)
Quarter: 2022Q2

REPORT INFORMATION
  Report Type: Spontaneous
  Country: CN (occurrence: CN)
  Receive Date: 20220407
  Receipt Date: 20220407
  Transmission Date: 20220721
  Serious: Yes (Hospitalization)
  Sender: FDA-Public Use
  Company Number: CN-VALIDUS PHARMACEUTICALS LLC-CN-VDP-2021-015316

PATIENT

DRUGS (4)
  1. ROCALTROL [Suspect]
     Active Substance: CALCITRIOL
     Indication: Mineral supplementation
     Dosage: 0.25 MICROGRAM, QD
     Route: 048
     Dates: start: 20210525, end: 20210601
  2. FERRIC POLYSACCHARIDE COMPLEX [Suspect]
     Active Substance: FERRIC POLYSACCHARIDE COMPLEX
     Indication: Mineral supplementation
     Dosage: 0.15 G, QD
     Route: 048
     Dates: start: 20210525, end: 20210601
  3. LANTHANUM CARBONATE [Suspect]
     Active Substance: LANTHANUM CARBONATE
     Indication: Hyperphosphataemia
     Dosage: 500 MG, BID
     Route: 048
     Dates: start: 20210525, end: 20210601
  4. ATORVASTATIN CALCIUM [Suspect]
     Active Substance: ATORVASTATIN CALCIUM
     Indication: Lipids decreased
     Dosage: 20 MG, QD
     Route: 048
     Dates: start: 20210525, end: 20210601

REACTIONS (1)
  - Drug-induced liver injury [Recovering/Resolving]

NARRATIVE: CASE EVENT DATE: 20210601
